FAERS Safety Report 4464154-3 (Version None)
Quarter: 2004Q4

REPORT INFORMATION
  Report Type: 
  Country: None (occurrence: None)
  Receive Date: 20041001
  Receipt Date: 20040923
  Transmission Date: 20050328
  Serious: Yes (Hospitalization, Other)
  Sender: FDA-Public Use
  Company Number: US-JNJFOC-20040908166

PATIENT
  Age: 53 Year
  Sex: Male

DRUGS (10)
  1. DURAGESIC [Suspect]
     Route: 062
     Dates: start: 20010101
  2. COUMADIN [Concomitant]
  3. TRAMADOL HCL [Concomitant]
  4. CELEBREX [Concomitant]
     Indication: ARTHRITIS
  5. LOVASTATIN [Concomitant]
  6. MONOPRIL [Concomitant]
     Indication: BLOOD PRESSURE
  7. METOPROLOL [Concomitant]
     Indication: BLOOD PRESSURE
  8. POTASSIUM CHLORIDE [Concomitant]
  9. HYDROCHLOROTHIAZIDE [Concomitant]
  10. CARISOPRODOL [Concomitant]

REACTIONS (7)
  - DYSARTHRIA [None]
  - GAIT DISTURBANCE [None]
  - INTERNATIONAL NORMALISED RATIO ABNORMAL [None]
  - OVERDOSE [None]
  - RESPIRATORY ARREST [None]
  - STAPHYLOCOCCAL INFECTION [None]
  - TRANSIENT ISCHAEMIC ATTACK [None]
